FAERS Safety Report 4268827-7 (Version None)
Quarter: 2004Q1

REPORT INFORMATION
  Report Type: 
  Country: None (occurrence: None)
  Receive Date: 20040109
  Receipt Date: 20031229
  Transmission Date: 20041129
  Serious: Yes (Life-Threatening, Hospitalization)
  Sender: FDA-Public Use
  Company Number: 2003122953

PATIENT
  Age: 40 Year
  Sex: Male
  Weight: 70 kg

DRUGS (2)
  1. ZELDOX [Suspect]
     Indication: OBSESSIVE-COMPULSIVE DISORDER
     Dosage: 80 MG (BID), ORAL
     Route: 048
     Dates: start: 20030401, end: 20030601
  2. ZELDOX [Suspect]
     Indication: SCHIZOPHRENIA
     Dosage: 80 MG (BID), ORAL
     Route: 048
     Dates: start: 20030401, end: 20030601

REACTIONS (3)
  - AKATHISIA [None]
  - INSOMNIA [None]
  - SUICIDAL IDEATION [None]
